FAERS Safety Report 16073722 (Version 6)
Quarter: 2020Q3

REPORT INFORMATION
  Report Type: Report from Study
  Country: US (occurrence: US)
  Receive Date: 20190314
  Receipt Date: 20200825
  Transmission Date: 20201102
  Serious: Yes (Hospitalization, Other)
  Sender: FDA-Public Use
  Company Number: PHEH2019US010865

PATIENT
  Age: 17 Year
  Sex: Female

DRUGS (1)
  1. GILENYA [Suspect]
     Active Substance: FINGOLIMOD HYDROCHLORIDE
     Indication: MULTIPLE SCLEROSIS
     Dosage: 0.5 MG, QD
     Route: 048
     Dates: start: 20190307

REACTIONS (12)
  - Band sensation [Not Recovered/Not Resolved]
  - Hypotension [Recovered/Resolved]
  - Hypoaesthesia [Recovering/Resolving]
  - Fatigue [Recovering/Resolving]
  - Facial pain [Recovering/Resolving]
  - Burning sensation [Unknown]
  - Multiple sclerosis relapse [Unknown]
  - Alopecia [Recovering/Resolving]
  - Neck pain [Recovering/Resolving]
  - Stress [Unknown]
  - Heart rate increased [Recovered/Resolved]
  - Weight increased [Unknown]

NARRATIVE: CASE EVENT DATE: 20190307
